FAERS Safety Report 22658652 (Version 12)
Quarter: 2024Q2

REPORT INFORMATION
  Report Type: Report from Study
  Country: US (occurrence: US)
  Receive Date: 20230630
  Receipt Date: 20240612
  Transmission Date: 20240716
  Serious: Yes (Hospitalization, Other)
  Sender: FDA-Public Use
  Company Number: US-INSMED-2023-01233-USAA

PATIENT
  Sex: Female

DRUGS (2)
  1. ARIKAYCE [Suspect]
     Active Substance: AMIKACIN
     Indication: Mycobacterium avium complex infection
     Dosage: 590 MILLIGRAM, QD
     Route: 055
     Dates: start: 20230404, end: 20230529
  2. ARIKAYCE [Suspect]
     Active Substance: AMIKACIN
     Dosage: 590 MILLIGRAM, QD
     Route: 055
     Dates: start: 20240105

REACTIONS (25)
  - Hospitalisation [Unknown]
  - Gastrointestinal disorder [Recovering/Resolving]
  - Intestinal obstruction [Not Recovered/Not Resolved]
  - Mycobacterium avium complex infection [Unknown]
  - Appetite disorder [Not Recovered/Not Resolved]
  - Secretion discharge [Unknown]
  - Heart rate increased [Unknown]
  - Ear congestion [Unknown]
  - Abdominal pain upper [Not Recovered/Not Resolved]
  - Weight decreased [Not Recovered/Not Resolved]
  - Vomiting [Unknown]
  - Pyrexia [Unknown]
  - Oropharyngeal pain [Recovering/Resolving]
  - Throat irritation [Recovering/Resolving]
  - Dizziness [Recovered/Resolved]
  - Dysphonia [Recovered/Resolved]
  - Cough [Not Recovered/Not Resolved]
  - Nausea [Unknown]
  - Illness [Unknown]
  - Tinnitus [Not Recovered/Not Resolved]
  - Dyspnoea [Recovering/Resolving]
  - Product dose omission issue [Unknown]
  - Therapy interrupted [Unknown]
  - Intentional dose omission [Unknown]
  - Drug ineffective [Unknown]

NARRATIVE: CASE EVENT DATE: 20230101
